FAERS Safety Report 4431506-7 (Version None)
Quarter: 2004Q3

REPORT INFORMATION
  Report Type: 
  Country: None (occurrence: None)
  Receive Date: 20040824
  Receipt Date: 20040603
  Transmission Date: 20050211
  Serious: Yes (Hospitalization, Other)
  Sender: FDA-Public Use
  Company Number: US-AMGEN-US079047

PATIENT
  Age: 42 Year
  Sex: Female
  Weight: 71.3 kg

DRUGS (5)
  1. EPOGEN [Suspect]
     Indication: PRE-EXISTING DISEASE
     Dates: start: 20030312, end: 20030416
  2. PEGASYS [Concomitant]
     Route: 058
     Dates: start: 20021115, end: 20031001
  3. RIBAVIRIN [Concomitant]
     Route: 048
     Dates: start: 20021115, end: 20030701
  4. PAXIL [Concomitant]
     Route: 048
     Dates: start: 20020501
  5. METHADONE HCL [Concomitant]
     Route: 048

REACTIONS (3)
  - ACUTE CORONARY SYNDROME [None]
  - CORONARY ARTERY OCCLUSION [None]
  - MYOCARDIAL INFARCTION [None]
